FAERS Safety Report 8932972 (Version 1)
Quarter: 2012Q4

REPORT INFORMATION
  Report Type: 
  Country: US (occurrence: US)
  Receive Date: 20121129
  Receipt Date: 20121129
  Transmission Date: 20130627
  Serious: No
  Sender: FDA-Public Use
  Company Number: US-JNJFOC-20121108201

PATIENT
  Sex: Female

DRUGS (9)
  1. SANDOZ FENTANYL TRANSDERMAL SYSTEM [Suspect]
     Indication: HEADACHE
     Route: 062
     Dates: start: 20121107
  2. TRAZODONE [Concomitant]
     Indication: SLEEP DISORDER THERAPY
     Route: 048
  3. TRILEPTAL [Concomitant]
     Indication: BIPOLAR DISORDER
     Route: 048
  4. NEXIUM [Concomitant]
     Indication: GASTROOESOPHAGEAL REFLUX DISEASE
     Route: 048
  5. IMITREX [Concomitant]
     Indication: HEADACHE
     Route: 058
  6. BUSPAR [Concomitant]
     Indication: ANXIETY
     Route: 048
  7. UNKNOWN MEDICATION [Concomitant]
     Indication: BIPOLAR DISORDER
     Route: 048
  8. SINGULAIR [Concomitant]
     Indication: MULTIPLE ALLERGIES
     Route: 048
  9. CRESTOR [Concomitant]
     Indication: BLOOD CHOLESTEROL
     Route: 048

REACTIONS (2)
  - Drug administered at inappropriate site [Not Recovered/Not Resolved]
  - Product quality issue [Unknown]
